FAERS Safety Report 12658862 (Version 1)
Quarter: 2016Q3

REPORT INFORMATION
  Report Type: Spontaneous
  Country: US (occurrence: US)
  Receive Date: 20160817
  Receipt Date: 20160817
  Transmission Date: 20161109
  Serious: Yes (Disabling, Other)
  Sender: FDA-Public Use
  Company Number: US-AMGEN-USASP2016103064

PATIENT
  Age: 57 Year
  Sex: Female

DRUGS (1)
  1. PROLIA [Suspect]
     Active Substance: DENOSUMAB
     Indication: OSTEOPOROSIS
     Dosage: UNK
     Route: 065
     Dates: start: 2016

REACTIONS (9)
  - Gait disturbance [Not Recovered/Not Resolved]
  - Spinal pain [Unknown]
  - General physical health deterioration [Unknown]
  - Herpes zoster [Unknown]
  - Condition aggravated [Unknown]
  - Disability [Not Recovered/Not Resolved]
  - Muscle swelling [Unknown]
  - Arthralgia [Not Recovered/Not Resolved]
  - Pain [Unknown]

NARRATIVE: CASE EVENT DATE: 2016
